FAERS Safety Report 21326492 (Version 2)
Quarter: 2022Q4

REPORT INFORMATION
  Report Type: Spontaneous
  Country: FR (occurrence: FR)
  Receive Date: 20220913
  Receipt Date: 20221108
  Transmission Date: 20230113
  Serious: Yes (Death, Other)
  Sender: FDA-Public Use
  Company Number: FR-INCYTE CORPORATION-2022IN008619

PATIENT

DRUGS (1)
  1. TAFASITAMAB [Suspect]
     Active Substance: TAFASITAMAB
     Indication: Diffuse large B-cell lymphoma
     Dosage: 12 MILLIGRAM/KILOGRAM, 800 MILLIGRAM D1,D4
     Route: 042
     Dates: start: 20220307, end: 20220314

REACTIONS (4)
  - Diffuse large B-cell lymphoma [Fatal]
  - Disease progression [Fatal]
  - Vascular compression [Unknown]
  - Nerve compression [Unknown]
